FAERS Safety Report 20480376 (Version 1)
Quarter: 2022Q1

REPORT INFORMATION
  Report Type: Spontaneous
  Country: US (occurrence: US)
  Receive Date: 20220216
  Receipt Date: 20220216
  Transmission Date: 20220423
  Serious: No
  Sender: FDA-Public Use
  Company Number: US-BAYER-2022A021237

PATIENT
  Age: 36 Year
  Sex: Female

DRUGS (1)
  1. ALEVE [Suspect]
     Active Substance: NAPROXEN SODIUM
     Indication: Cancer pain
     Dosage: UNK
     Route: 048
     Dates: start: 2021, end: 20220207

REACTIONS (2)
  - Incorrect dose administered [None]
  - Incorrect product administration duration [None]

NARRATIVE: CASE EVENT DATE: 20210101
